FAERS Safety Report 21637007 (Version 5)
Quarter: 2023Q2

REPORT INFORMATION
  Report Type: Report from Study
  Country: CN (occurrence: CN)
  Receive Date: 20221124
  Receipt Date: 20230522
  Transmission Date: 20230722
  Serious: Yes (Hospitalization)
  Sender: FDA-Public Use
  Company Number: CN-002147023-NVSC2022CN262116

PATIENT
  Age: 60 Year
  Sex: Female
  Weight: 61.1 kg

DRUGS (5)
  1. TYKERB [Suspect]
     Active Substance: LAPATINIB DITOSYLATE
     Indication: Breast cancer
     Dosage: 1250 MG, QD (TABLET, 250 MG)
     Route: 048
     Dates: start: 20220321
  2. TYKERB [Suspect]
     Active Substance: LAPATINIB DITOSYLATE
     Dosage: 1250 MG, QD
     Route: 065
  3. CAPECITABINE [Suspect]
     Active Substance: CAPECITABINE
     Indication: Breast cancer
     Dosage: 1500 MG, BID
     Route: 048
     Dates: start: 20220321, end: 20220718
  4. CAPECITABINE [Suspect]
     Active Substance: CAPECITABINE
     Dosage: 1250 MG, BID
     Route: 048
     Dates: start: 20220727
  5. CAPECITABINE [Suspect]
     Active Substance: CAPECITABINE
     Dosage: 2500 MG, QD
     Route: 065

REACTIONS (8)
  - Herpes zoster [Recovered/Resolved]
  - Oedema peripheral [Recovered/Resolved]
  - Pain in extremity [Recovered/Resolved]
  - Hepatic steatosis [Unknown]
  - Aortic arteriosclerosis [Unknown]
  - Electrocardiogram ST-T change [Unknown]
  - Pleural thickening [Unknown]
  - Palmar-plantar erythrodysaesthesia syndrome [Unknown]

NARRATIVE: CASE EVENT DATE: 20221106
